FAERS Safety Report 4340855-2 (Version None)
Quarter: 2004Q2

REPORT INFORMATION
  Report Type: 
  Country: None (occurrence: None)
  Receive Date: 20040414
  Receipt Date: 20040325
  Transmission Date: 20050107
  Serious: Yes (Hospitalization)
  Sender: FDA-Public Use
  Company Number: A02200401084

PATIENT
  Sex: Female

DRUGS (6)
  1. STILNOX - (ZOLPIDEM) - TABLET 10 MG [Suspect]
     Dosage: TRANSPLACENTAL
     Route: 064
     Dates: start: 20021201, end: 20030919
  2. XANAX [Suspect]
     Dosage: 0.5 MG QID / 0.5 MG BID, TRANSPLACENTAL
     Route: 064
     Dates: start: 20021201, end: 20030911
  3. XANAX [Suspect]
     Dosage: 0.5 MG QID / 0.5 MG BID, TRANSPLACENTAL
     Route: 064
     Dates: start: 20030911, end: 20030919
  4. PROZAC [Suspect]
     Indication: MATERNAL DRUGS AFFECTING FOETUS
     Dosage: 20 MG OD, TRANSPLACENTAL
     Route: 064
     Dates: start: 20021201, end: 20030919
  5. MYOLASTAN (TETRAZEPAM) [Concomitant]
  6. CLONAZEPAM [Concomitant]

REACTIONS (3)
  - BRADYCARDIA NEONATAL [None]
  - COMPLICATIONS OF MATERNAL EXPOSURE TO THERAPEUTIC DRUGS [None]
  - DRUG EXPOSURE DURING PREGNANCY [None]
